FAERS Safety Report 11118323 (Version 1)
Quarter: 2015Q2

REPORT INFORMATION
  Report Type: Spontaneous
  Country: JP (occurrence: JP)
  Receive Date: 20150518
  Receipt Date: 20150518
  Transmission Date: 20150821
  Serious: Yes (Life-Threatening, Hospitalization, Other)
  Sender: FDA-Public Use
  Company Number: JP-ASTRAZENECA-2015SE45612

PATIENT
  Age: 37 Year
  Sex: Female

DRUGS (4)
  1. SEROQUEL [Suspect]
     Active Substance: QUETIAPINE FUMARATE
     Indication: PRODUCT USED FOR UNKNOWN INDICATION
     Dosage: 42 TABLETS, 1050 MG, ONCE DAILY
     Route: 048
     Dates: start: 201505, end: 201505
  2. ANTIEPILEPTIC DRUGS [Suspect]
     Active Substance: UNSPECIFIED INGREDIENT
     Dosage: 200 MG X 105 TABLETS
     Route: 065
     Dates: start: 201505, end: 201505
  3. ANTIDEPRESSANT DRUG [Suspect]
     Active Substance: UNSPECIFIED INGREDIENT
     Dosage: 20 MG X 40 CAPSULES
     Route: 065
     Dates: start: 201505, end: 201505
  4. 3 KINDS OF HYPNOTIC SEDATIVE DRUGS/ANTIANXIETY DRUGS [Suspect]
     Active Substance: UNSPECIFIED INGREDIENT
     Dosage: 189 TABLETS, 0.25 MG X 21 TABLETS, 21 TABLETS
     Route: 065
     Dates: start: 201505, end: 201505

REACTIONS (3)
  - Suicide attempt [Unknown]
  - Altered state of consciousness [Unknown]
  - Intentional overdose [Unknown]

NARRATIVE: CASE EVENT DATE: 201505
